FAERS Safety Report 7345469-8 (Version None)
Quarter: 2011Q1

REPORT INFORMATION
  Report Type: 
  Country: None (occurrence: None)
  Receive Date: 20110310
  Receipt Date: 20110225
  Transmission Date: 20110831
  Serious: Yes (Hospitalization)
  Sender: FDA-Public Use
  Company Number: JP-GENENTECH-314901

PATIENT
  Sex: Male

DRUGS (28)
  1. OMALIZUMAB [Suspect]
     Indication: ASTHMA
     Dosage: 225 MG, Q2W
     Route: 058
     Dates: start: 20091009
  2. OMALIZUMAB [Suspect]
     Dosage: 225 MG, Q2W
     Route: 058
     Dates: start: 20100205
  3. SYMBICORT [Concomitant]
     Indication: PRODUCT USED FOR UNKNOWN INDICATION
     Dosage: UNK
     Dates: start: 20100121
  4. RISPERDAL [Concomitant]
     Indication: PRODUCT USED FOR UNKNOWN INDICATION
     Dosage: UNK
     Dates: start: 20100302
  5. MIYA-BM [Concomitant]
     Indication: PRODUCT USED FOR UNKNOWN INDICATION
  6. AVELOX [Concomitant]
     Indication: PRODUCT USED FOR UNKNOWN INDICATION
     Dosage: UNK
     Dates: start: 20100224, end: 20100302
  7. ONON [Concomitant]
     Indication: PRODUCT USED FOR UNKNOWN INDICATION
     Dosage: UNK
     Dates: start: 20090109
  8. MUCODYNE [Concomitant]
     Indication: PRODUCT USED FOR UNKNOWN INDICATION
  9. TAMSULOSIN HCL [Concomitant]
     Indication: PRODUCT USED FOR UNKNOWN INDICATION
  10. OMALIZUMAB [Suspect]
     Dosage: 225 MG, Q2W
     Route: 058
     Dates: start: 20100108
  11. OMALIZUMAB [Suspect]
     Dosage: 225 MG, Q2W
     Route: 058
     Dates: start: 20100305
  12. OMALIZUMAB [Suspect]
     Dosage: 225 MG, Q2W
     Route: 058
     Dates: start: 20100402, end: 20100402
  13. PREDONINE [Suspect]
     Dosage: 10 MG, QD
     Route: 048
     Dates: start: 20100123, end: 20100302
  14. QVAR 40 [Concomitant]
     Indication: PRODUCT USED FOR UNKNOWN INDICATION
     Dosage: UNK
     Dates: start: 20090120
  15. TAKEPRON [Concomitant]
     Indication: PRODUCT USED FOR UNKNOWN INDICATION
  16. RISPERDAL [Concomitant]
     Dosage: UNK
  17. MYSLEE [Concomitant]
     Indication: PRODUCT USED FOR UNKNOWN INDICATION
  18. OMALIZUMAB [Suspect]
     Dosage: 225 MG, Q2W
     Route: 058
     Dates: start: 20100122
  19. OMALIZUMAB [Suspect]
     Dosage: 225 MG, Q2W
     Route: 058
     Dates: start: 20100219
  20. PREDONINE [Suspect]
     Dosage: 10 MG, QD
     Route: 048
     Dates: start: 20100116, end: 20100122
  21. CLARITHROMYCIN [Concomitant]
     Indication: PRODUCT USED FOR UNKNOWN INDICATION
     Dosage: UNK
     Dates: start: 20100116
  22. RISPERDAL [Concomitant]
     Dosage: UNK
     Dates: end: 20100308
  23. ADOAIR [Concomitant]
     Indication: PRODUCT USED FOR UNKNOWN INDICATION
     Dosage: UNK
     Dates: start: 20090317, end: 20100120
  24. SYMBICORT [Concomitant]
  25. HERBESSER R [Concomitant]
     Indication: PRODUCT USED FOR UNKNOWN INDICATION
  26. OMALIZUMAB [Suspect]
     Dosage: 225 MG, Q2W
     Route: 058
     Dates: start: 20091218
  27. PREDONINE [Suspect]
     Indication: ASTHMA
     Dosage: 5 MG, QD
     Route: 048
     Dates: start: 20091225
  28. PREDONINE [Suspect]
     Dosage: 15 MG, QD
     Route: 048
     Dates: start: 20100303

REACTIONS (3)
  - DELIRIUM [None]
  - PERSECUTORY DELUSION [None]
  - ASTHMA [None]
